FAERS Safety Report 9290493 (Version 3)
Quarter: 2013Q4

REPORT INFORMATION
  Report Type: Spontaneous
  Country: US (occurrence: US)
  Receive Date: 20130515
  Receipt Date: 20131118
  Transmission Date: 20140711
  Serious: Yes (Congenital Anomaly, Other)
  Sender: FDA-Public Use
  Company Number: US-PFIZER INC-2013149343

PATIENT
  Sex: Female
  Weight: 3.09 kg

DRUGS (34)
  1. ZOLOFT [Suspect]
     Indication: GENERALISED ANXIETY DISORDER
     Dosage: 50 MG, 2X/DAY
     Route: 064
     Dates: start: 20090210
  2. ZOLOFT [Suspect]
     Indication: DEPRESSION
     Dosage: UNK
     Route: 064
     Dates: start: 2010
  3. ZOLOFT [Suspect]
     Dosage: 50 MG, 1X/DAY
     Route: 064
     Dates: start: 20100510, end: 20101202
  4. ZOLOFT [Suspect]
     Dosage: 100 MG, 1X/DAY
     Route: 064
     Dates: start: 20101003, end: 20110412
  5. ZOLOFT [Suspect]
     Dosage: 150 MG, 1X/DAY (AT BEDTIME)
     Route: 064
     Dates: start: 20110412
  6. SERTRALINE HCL [Suspect]
     Indication: DEPRESSION
     Dosage: UNK
     Route: 064
     Dates: start: 20100714
  7. PRENATAL MULTIVITAMIN [Concomitant]
     Dosage: UNK, ONCE A DAY
     Route: 064
     Dates: start: 20100713, end: 20111222
  8. VITAMIN D3 [Concomitant]
     Dosage: 1 DF, 1X/DAY
     Route: 064
     Dates: start: 20100830
  9. RHINOCORT AQUA [Concomitant]
     Indication: HYPERSENSITIVITY
     Dosage: 32 UG, 2X/DAY
     Route: 064
     Dates: start: 20100927, end: 20120402
  10. FLEXERIL [Concomitant]
     Indication: MUSCLE SPASMS
     Dosage: 10 MG, 3X/DAY AS NEEDED
     Route: 064
     Dates: start: 20110131
  11. VICODIN 5/500 [Concomitant]
     Dosage: 5MG/500MG, EVERY FOUR TO SIX HOURS AS NEEDED
     Route: 064
     Dates: start: 20110223
  12. LORTAB 5/500 [Concomitant]
     Dosage: 5MG/500 MG, EVERY FOUR TO SIX HOURS AS NEEDED
     Route: 064
     Dates: start: 20110223
  13. AMBIEN [Concomitant]
     Dosage: 10 MG, 1X/DAY (AT BEDTIME)
     Route: 064
     Dates: start: 20110325
  14. ZYRTEC [Concomitant]
     Indication: HYPERSENSITIVITY
     Dosage: 10 MG, 1X/DAY
     Route: 064
     Dates: start: 20070717, end: 20110420
  15. METAMUCIL [Concomitant]
     Dosage: 0.52GM FIVE CAPSULES ONCE A DAY
     Route: 064
     Dates: start: 20110417, end: 20110420
  16. XYLOCAINE [Concomitant]
     Indication: PAIN
     Dosage: 2% GEL AS NEEDED
     Route: 064
     Dates: start: 20110418, end: 20110419
  17. LIDOCAINE [Concomitant]
     Indication: PAIN
     Dosage: 0.1-0.2ML AS NEEDED
     Route: 064
     Dates: start: 20110418, end: 20110419
  18. CYTOTEC [Concomitant]
     Dosage: QUARTER TABLET (25MCG TABLET) EVERY FOUR HOURS
     Route: 064
     Dates: start: 20110418, end: 20110419
  19. FLEET ENEMA [Concomitant]
     Indication: CONSTIPATION
     Dosage: UNK, AS NEEDED
     Route: 064
     Dates: start: 20110418, end: 20110419
  20. FENTANYL [Concomitant]
     Indication: PAIN
     Dosage: UNK, EVERY ONE HOUR AS NEEDED
     Route: 064
     Dates: start: 20110418, end: 20110419
  21. PITOCIN [Concomitant]
     Dosage: UNK, AS NEEDED
     Route: 064
     Dates: start: 20110418, end: 20110419
  22. TYLENOL [Concomitant]
     Indication: PAIN
     Dosage: 320-650MG, EVERY FOUR HOURS AS NEEDED
     Route: 064
     Dates: start: 20110418, end: 20110419
  23. COLACE [Concomitant]
     Dosage: 200 MG, 1X/DAY (AT BEDTIME)
     Route: 064
     Dates: start: 20110418, end: 20110419
  24. ADVIL [Concomitant]
     Indication: MUSCLE SPASMS
     Dosage: 400-600MG EVERY FOUR HOURS AS NEEDED
     Route: 064
     Dates: start: 20110418, end: 20110420
  25. ADVIL [Concomitant]
     Indication: MUSCULOSKELETAL STIFFNESS
  26. ADVIL [Concomitant]
     Indication: SWELLING
  27. ADVIL [Concomitant]
     Indication: PAIN
  28. MOTRIN [Concomitant]
     Indication: MUSCLE SPASMS
     Dosage: 400 - 600MG EVERY FOUR HOURS AS NEEDED
     Route: 064
     Dates: start: 20110418, end: 20110420
  29. MOTRIN [Concomitant]
     Indication: MUSCULOSKELETAL STIFFNESS
  30. MOTRIN [Concomitant]
     Indication: SWELLING
  31. MOTRIN [Concomitant]
     Indication: PAIN
  32. KLONOPIN [Concomitant]
     Dosage: 0.5 MG, 1X/DAY AT BED TIME
     Route: 064
     Dates: start: 20100420, end: 20100824
  33. WELLBUTRIN [Concomitant]
     Dosage: 150 MG, 2X/DAY FOR EVERY 12 HOURS
     Route: 064
     Dates: start: 20100421, end: 20100824
  34. MINOCYCLINE [Concomitant]
     Dosage: 100 MG, 2X/DAY FOR EVERY 12 HOURS
     Route: 064
     Dates: end: 20100813

REACTIONS (2)
  - Foetal exposure during pregnancy [Unknown]
  - Talipes [Unknown]
